FAERS Safety Report 13362767 (Version 1)
Quarter: 2017Q1

REPORT INFORMATION
  Report Type: Spontaneous
  Country: US (occurrence: US)
  Receive Date: 20170323
  Receipt Date: 20170323
  Transmission Date: 20170429
  Serious: No
  Sender: FDA-Public Use
  Company Number: US-DRREDDYS-USA/USA/16/0081834

PATIENT
  Age: 49 Year
  Sex: Female

DRUGS (1)
  1. LAMOTRIGINE TABLETS [Suspect]
     Active Substance: LAMOTRIGINE
     Indication: EPILEPSY
     Route: 065

REACTIONS (6)
  - Vision blurred [Unknown]
  - Vertigo [Unknown]
  - Diplopia [Unknown]
  - Dizziness [Unknown]
  - Balance disorder [Unknown]
  - Toxicity to various agents [Unknown]
